FAERS Safety Report 21513811 (Version 1)
Quarter: 2022Q4

REPORT INFORMATION
  Report Type: Spontaneous
  Country: US (occurrence: US)
  Receive Date: 20221027
  Receipt Date: 20221027
  Transmission Date: 20230112
  Serious: No
  Sender: FDA-Public Use
  Company Number: US-SA-SAC20221026001476

PATIENT
  Age: 45 Year
  Sex: Male

DRUGS (4)
  1. DUPIXENT [Suspect]
     Active Substance: DUPILUMAB
     Indication: Cutaneous T-cell lymphoma stage IV
     Dosage: 300 MG, QOW
     Route: 058
     Dates: end: 202207
  2. DUPIXENT [Suspect]
     Active Substance: DUPILUMAB
     Indication: Dermatitis atopic
  3. VALCHLOR [Concomitant]
     Active Substance: MECHLORETHAMINE
  4. IBUPROFEN [Concomitant]
     Active Substance: IBUPROFEN

REACTIONS (1)
  - Unintentional use for unapproved indication [Unknown]
